FAERS Safety Report 14399008 (Version 3)
Quarter: 2018Q2

REPORT INFORMATION
  Report Type: Spontaneous
  Country: US (occurrence: US)
  Receive Date: 20180117
  Receipt Date: 20180623
  Transmission Date: 20180711
  Serious: Yes (Death, Hospitalization)
  Sender: FDA-Public Use
  Company Number: US-JNJFOC-20171216201

PATIENT
  Age: 82 Year
  Sex: Male

DRUGS (4)
  1. XARELTO [Suspect]
     Active Substance: RIVAROXABAN
     Indication: ATRIAL FIBRILLATION
     Dosage: FIRST, RIVAROXABAN 15 MG TWICE A DAY AND THEN RIVAROXABAN 20 MG BEFORE EVENING
     Route: 048
     Dates: start: 20151130, end: 20151206
  2. ASPIRIN. [Suspect]
     Active Substance: ASPIRIN
     Indication: PRODUCT USED FOR UNKNOWN INDICATION
     Route: 048
  3. XARELTO [Suspect]
     Active Substance: RIVAROXABAN
     Indication: THROMBOSIS PROPHYLAXIS
     Dosage: FIRST, RIVAROXABAN 15 MG TWICE A DAY AND THEN RIVAROXABAN 20 MG BEFORE EVENING
     Route: 048
     Dates: start: 20151130, end: 20151206
  4. XARELTO [Suspect]
     Active Substance: RIVAROXABAN
     Indication: CEREBROVASCULAR ACCIDENT PROPHYLAXIS
     Dosage: FIRST, RIVAROXABAN 15 MG TWICE A DAY AND THEN RIVAROXABAN 20 MG BEFORE EVENING
     Route: 048
     Dates: start: 20151130, end: 20151206

REACTIONS (1)
  - Intracranial tumour haemorrhage [Fatal]

NARRATIVE: CASE EVENT DATE: 20151206
